FAERS Safety Report 6672045-2 (Version None)
Quarter: 2010Q2

REPORT INFORMATION
  Report Type: 
  Country: None (occurrence: None)
  Receive Date: 20100406
  Receipt Date: 20100325
  Transmission Date: 20101027
  Serious: Yes (Hospitalization, Other)
  Sender: FDA-Public Use
  Company Number: 2010JP001532

PATIENT
  Age: 21 Year
  Sex: Female
  Weight: 78 kg

DRUGS (15)
  1. TACROLIMUS [Suspect]
     Indication: LUPUS NEPHRITIS
     Dosage: 3 MG, /D, ORAL; 1.5 MG, /D, ORAL
     Route: 048
     Dates: start: 20090819, end: 20091006
  2. TACROLIMUS [Suspect]
     Indication: LUPUS NEPHRITIS
     Dosage: 3 MG, /D, ORAL; 1.5 MG, /D, ORAL
     Route: 048
     Dates: start: 20091007
  3. PREDNISOLONE [Suspect]
     Indication: LUPUS NEPHRITIS
     Dosage: SEE IMAGE
     Route: 048
     Dates: start: 20090819, end: 20090908
  4. PREDNISOLONE [Suspect]
     Indication: LUPUS NEPHRITIS
     Dosage: SEE IMAGE
     Route: 048
     Dates: start: 20090909, end: 20091006
  5. PREDNISOLONE [Suspect]
     Indication: LUPUS NEPHRITIS
     Dosage: SEE IMAGE
     Route: 048
     Dates: start: 20091007, end: 20091104
  6. PREDNISOLONE [Suspect]
     Indication: LUPUS NEPHRITIS
     Dosage: SEE IMAGE
     Route: 048
     Dates: start: 20091105, end: 20100106
  7. PREDNISOLONE [Suspect]
     Indication: LUPUS NEPHRITIS
     Dosage: SEE IMAGE
     Route: 048
     Dates: start: 20100107, end: 20100210
  8. PREDNISOLONE [Suspect]
     Indication: LUPUS NEPHRITIS
     Dosage: SEE IMAGE
     Route: 048
     Dates: start: 20100211
  9. CANDESARTAN CILEXETIL [Concomitant]
  10. PRAVASTATIN SODIUM [Concomitant]
  11. ONEALFA (ALFACALCIDOL) [Concomitant]
  12. FERROMIA (FERROUS SODIUM CITRATE) [Concomitant]
  13. RABEPRAZOLE SODIUM [Concomitant]
  14. SELBEX (TEPRENONE) [Concomitant]
  15. MAGBITT (MAGNESIUM OXIDE) [Concomitant]

REACTIONS (5)
  - BACK PAIN [None]
  - CHEST PAIN [None]
  - OSTEONECROSIS [None]
  - PLEURISY [None]
  - PNEUMONIA [None]
